FAERS Safety Report 6356081-1 (Version None)
Quarter: 2009Q3

REPORT INFORMATION
  Report Type: 
  Country: None (occurrence: None)
  Receive Date: 20090911
  Receipt Date: 20090911
  Transmission Date: 20100115
  Serious: Yes (Disabling)
  Sender: FDA-Public Use
  Company Number: None

PATIENT
  Age: 74 Year
  Sex: Female
  Weight: 81.6475 kg

DRUGS (1)
  1. METOCLOPRAMIDE [Suspect]
     Dosage: 1 TABLET 3 TIMES/DAY
     Dates: start: 20020101, end: 20060101

REACTIONS (2)
  - SPEECH DISORDER [None]
  - TARDIVE DYSKINESIA [None]
